FAERS Safety Report 8517726-0 (Version None)
Quarter: 2012Q3

REPORT INFORMATION
  Report Type: 
  Country: None (occurrence: None)
  Receive Date: 20120718
  Receipt Date: 20120712
  Transmission Date: 20120928
  Serious: Yes (Death, Hospitalization)
  Sender: FDA-Public Use
  Company Number: US-CELGENEUS-163-21880-12042643

PATIENT
  Sex: Male
  Weight: 75 kg

DRUGS (12)
  1. LIDODERM [Concomitant]
     Dosage: 5 PERCENT
     Route: 065
  2. DEXAMETHASONE [Concomitant]
     Dosage: 4 MILLIGRAM
     Route: 065
  3. ASPIRIN [Concomitant]
     Dosage: 81 MILLIGRAM
     Route: 065
  4. REVLIMID [Suspect]
     Indication: MULTIPLE MYELOMA
     Dosage: 25 MILLIGRAM
     Route: 048
     Dates: start: 20100213
  5. NEXIUM [Concomitant]
     Dosage: 40 MILLIGRAM
     Route: 065
  6. PREDNISONE [Concomitant]
     Dosage: 5 MILLIGRAM
     Route: 065
  7. DURAGESIC-100 [Concomitant]
     Dosage: 75 MICROGRAM
     Route: 065
  8. TEMAZEPAM [Concomitant]
     Dosage: 15 MILLIGRAM
     Route: 065
  9. LISINOPRIL [Concomitant]
     Dosage: 5 MILLIGRAM
     Route: 065
  10. PRAVASTATIN SODIUM [Concomitant]
     Dosage: 40 MILLIGRAM
     Route: 065
  11. OXYCODONE HCL [Concomitant]
     Dosage: 5 MILLIGRAM
     Route: 065
  12. SYNTHROID [Concomitant]
     Dosage: 150 MICROGRAM
     Route: 065

REACTIONS (2)
  - DEATH [None]
  - LOCALISED INFECTION [None]
